FAERS Safety Report 6967651-1 (Version None)
Quarter: 2010Q3

REPORT INFORMATION
  Report Type: 
  Country: None (occurrence: None)
  Receive Date: 20100907
  Receipt Date: 20100830
  Transmission Date: 20110219
  Serious: Yes (Other)
  Sender: FDA-Public Use
  Company Number: US-PFIZER INC-2010099012

PATIENT
  Sex: Male

DRUGS (10)
  1. CHANTIX [Suspect]
     Indication: SMOKING CESSATION THERAPY
     Dosage: 1 MG, 2X/DAY
     Dates: start: 20080826, end: 20100724
  2. LANOXIN [Concomitant]
     Indication: HEART RATE IRREGULAR
     Dosage: 0.375 MG
     Dates: start: 19980101
  3. ZOLOFT [Concomitant]
     Indication: OBSESSIVE-COMPULSIVE DISORDER
     Dosage: 200 MG DAILY
     Dates: start: 20000101
  4. GEMFIBROZIL [Concomitant]
     Indication: BLOOD TRIGLYCERIDES INCREASED
     Dosage: UNK
     Dates: start: 20040101
  5. FUROSEMIDE [Concomitant]
     Dosage: UNK
     Dates: start: 20050101
  6. METOPROLOL [Concomitant]
     Indication: HYPERTENSION
     Dosage: UNK
     Dates: start: 20050101
  7. BUSPIRONE [Concomitant]
     Indication: ANXIETY
     Dosage: UNK
     Dates: start: 20050101
  8. HALOPERIDOL [Concomitant]
     Indication: PSYCHOTIC DISORDER
     Dosage: UNK
     Dates: start: 19910101
  9. LANTUS [Concomitant]
     Indication: DIABETES MELLITUS
     Dosage: UNK
     Dates: start: 20060101
  10. WARFARIN [Concomitant]
     Indication: ANTICOAGULANT THERAPY
     Dosage: UNK
     Dates: start: 20050101

REACTIONS (4)
  - ANXIETY [None]
  - DEPRESSED MOOD [None]
  - IMPULSIVE BEHAVIOUR [None]
  - PARANOIA [None]
